FAERS Safety Report 8294960-9 (Version None)
Quarter: 2012Q2

REPORT INFORMATION
  Report Type: 
  Country: None (occurrence: None)
  Receive Date: 20120418
  Receipt Date: 20120410
  Transmission Date: 20120825
  Serious: Yes (Other)
  Sender: FDA-Public Use
  Company Number: PT-JNJFOC-20120404712

PATIENT
  Sex: Female

DRUGS (6)
  1. SPORANOX [Suspect]
     Route: 065
  2. CLONAZEPAM [Concomitant]
     Indication: PRODUCT USED FOR UNKNOWN INDICATION
     Route: 065
  3. SPORANOX [Suspect]
     Indication: BRONCHOPULMONARY ASPERGILLOSIS
     Route: 065
  4. ENOXAPARIN [Suspect]
     Indication: PRODUCT USED FOR UNKNOWN INDICATION
     Route: 065
  5. OMEPRAZOLE [Concomitant]
     Indication: PRODUCT USED FOR UNKNOWN INDICATION
     Route: 065
  6. DEFLAZACORT [Concomitant]
     Indication: PRODUCT USED FOR UNKNOWN INDICATION
     Route: 065

REACTIONS (5)
  - DRUG INEFFECTIVE [None]
  - THROMBOCYTOPENIA [None]
  - BLOOD SODIUM DECREASED [None]
  - ERYTHEMA [None]
  - PRURITUS [None]
